FAERS Safety Report 7308194-5 (Version None)
Quarter: 2011Q1

REPORT INFORMATION
  Report Type: 
  Country: None (occurrence: None)
  Receive Date: 20110223
  Receipt Date: 20110218
  Transmission Date: 20110831
  Serious: Yes (Other)
  Sender: FDA-Public Use
  Company Number: TW-BRISTOL-MYERS SQUIBB COMPANY-15550411

PATIENT
  Age: 39 Year
  Sex: Male

DRUGS (5)
  1. VALPROIC ACID [Concomitant]
     Indication: DYSTONIA
  2. ARIPIPRAZOLE [Suspect]
     Indication: SCHIZOPHRENIA
  3. CLONAZEPAM [Concomitant]
     Indication: DYSTONIA
  4. MEPHENOXALONE [Concomitant]
     Indication: MUSCLE RELAXANT THERAPY
  5. CLOZAPINE [Suspect]
     Indication: SCHIZOPHRENIA

REACTIONS (1)
  - PSYCHOTIC DISORDER [None]
